FAERS Safety Report 9179429 (Version 3)
Quarter: 2013Q2

REPORT INFORMATION
  Report Type: Spontaneous
  Country: US (occurrence: US)
  Receive Date: 20130321
  Receipt Date: 20130515
  Transmission Date: 20140414
  Serious: No
  Sender: FDA-Public Use
  Company Number: US-009507513-1303USA008433

PATIENT
  Age: 53 Year
  Sex: Male
  Weight: 81.63 kg

DRUGS (8)
  1. NASONEX [Suspect]
     Indication: HYPERSENSITIVITY
     Dosage: 50, TWO IN EACH NOSTRIL, QD
  2. XYZAL [Concomitant]
  3. PREVACID [Concomitant]
  4. DIPHTHERIA TOXOID (+) PERTUSSIS ACELLULAR VACCINE (UNSPECIFIED) (+) TE [Concomitant]
     Dosage: UNK
     Dates: start: 20121228, end: 20121228
  5. OMEGA-3 MARINE TRIGLYCERIDES [Concomitant]
  6. VITAMINS (UNSPECIFIED) [Concomitant]
  7. CHOLECALCIFEROL [Concomitant]
  8. RED YEAST [Concomitant]

REACTIONS (8)
  - Varicella [Not Recovered/Not Resolved]
  - Headache [Not Recovered/Not Resolved]
  - Abdominal pain [Not Recovered/Not Resolved]
  - Abdominal pain upper [Not Recovered/Not Resolved]
  - Back pain [Not Recovered/Not Resolved]
  - Rhinorrhoea [Not Recovered/Not Resolved]
  - Nasal congestion [Not Recovered/Not Resolved]
  - Cough [Not Recovered/Not Resolved]
